FAERS Safety Report 7280284-5 (Version None)
Quarter: 2011Q1

REPORT INFORMATION
  Report Type: 
  Country: None (occurrence: None)
  Receive Date: 20110208
  Receipt Date: 20101206
  Transmission Date: 20110831
  Serious: Yes (Other)
  Sender: FDA-Public Use
  Company Number: US-BAYER-201038851NA

PATIENT
  Sex: Female

DRUGS (2)
  1. MIRENA [Suspect]
     Indication: UNEVALUABLE EVENT
     Route: 064
     Dates: end: 20100201
  2. MIRENA [Suspect]
     Route: 064
     Dates: end: 20100201

REACTIONS (2)
  - FOETAL GROWTH RESTRICTION [None]
  - SMALL FOR DATES BABY [None]
